FAERS Safety Report 25055664 (Version 2)
Quarter: 2025Q1

REPORT INFORMATION
  Report Type: Report from Study
  Country: IN (occurrence: IN)
  Receive Date: 20250309
  Receipt Date: 20250320
  Transmission Date: 20250409
  Serious: Yes (Other)
  Sender: ROCHE
  Company Number: IN-ROCHE-3391759

PATIENT
  Age: 61 Year
  Sex: Male

DRUGS (3)
  1. TECENTRIQ [Suspect]
     Active Substance: ATEZOLIZUMAB
     Indication: Hepatocellular carcinoma
     Dosage: 4TH CYCLE INTERVAL - 23RD DAY?8TH CYCLE INTERVAL - 24TH DAY?23RD CYCLE INTERVAL - 23RD DAY
     Route: 042
     Dates: start: 20230503
  2. TECENTRIQ [Suspect]
     Active Substance: ATEZOLIZUMAB
     Route: 042
     Dates: start: 20230708
  3. TECENTRIQ [Suspect]
     Active Substance: ATEZOLIZUMAB
     Route: 042
     Dates: start: 20231003

REACTIONS (3)
  - Off label use [Unknown]
  - Positron emission tomogram abnormal [Unknown]
  - Metastasis [Unknown]
